FAERS Safety Report 8988690 (Version 1)
Quarter: 2012Q4

REPORT INFORMATION
  Report Type: 
  Country: CA (occurrence: CA)
  Receive Date: 20121228
  Receipt Date: 20121228
  Transmission Date: 20130627
  Serious: Yes (Death)
  Sender: FDA-Public Use
  Company Number: CA-AMGEN-CANSP2012083395

PATIENT
  Age: 77 Year
  Sex: Female

DRUGS (1)
  1. XGEVA [Suspect]
     Indication: LUNG NEOPLASM MALIGNANT
     Dosage: UNK
     Dates: start: 20090911

REACTIONS (1)
  - Death [Fatal]
